FAERS Safety Report 15685606 (Version 1)
Quarter: 2018Q4

REPORT INFORMATION
  Report Type: Spontaneous
  Country: US (occurrence: US)
  Receive Date: 20181121
  Receipt Date: 20181121
  Transmission Date: 20190205
  Serious: Yes (Death, Hospitalization)
  Sender: FDA-Public Use
  Company Number: None

PATIENT
  Age: 10 Year
  Sex: Male
  Weight: 44.9 kg

DRUGS (36)
  1. VINCRISTINE SULFATE. [Suspect]
     Active Substance: VINCRISTINE SULFATE
     Dates: end: 20181106
  2. ALBUMIUM [Concomitant]
  3. CHLORHEXIDINE TOPICAL [Concomitant]
  4. DEXTROSE. [Concomitant]
     Active Substance: DEXTROSE
  5. FENTANYL. [Concomitant]
     Active Substance: FENTANYL
  6. GLYCOPHYRROLATE [Concomitant]
  7. ROCURONIUM ADDTIVE [Concomitant]
  8. SODIUM CHLORIDE. [Concomitant]
     Active Substance: SODIUM CHLORIDE
  9. MOREPINEPHRINE ADDITIVE [Concomitant]
  10. PREDNISONE. [Suspect]
     Active Substance: PREDNISONE
     Dates: end: 20181112
  11. AMLODIPINE [Suspect]
     Active Substance: AMLODIPINE BESYLATE
  12. HEPARIN ADDITIVE [Concomitant]
  13. SODIUM BICARBONATE. [Concomitant]
     Active Substance: SODIUM BICARBONATE
  14. VASOPRESSIN ADDITIVE [Concomitant]
  15. EPINEPHRINE. [Concomitant]
     Active Substance: EPINEPHRINE
  16. HYDROCORTISONE. [Concomitant]
     Active Substance: HYDROCORTISONE
  17. LIDOCAINE. [Concomitant]
     Active Substance: LIDOCAINE
  18. MORPHINE [Concomitant]
     Active Substance: MORPHINE
  19. ONDANSETRON [Concomitant]
     Active Substance: ONDANSETRON
  20. SULFAMETHOXAZOLE-TRI [Concomitant]
  21. METRONIDAZOLE. [Concomitant]
     Active Substance: METRONIDAZOLE
  22. PANTOPRAZOLE [Concomitant]
     Active Substance: PANTOPRAZOLE
  23. ROCURONIUM [Concomitant]
     Active Substance: ROCURONIUM BROMIDE
  24. VITAMIN C [Concomitant]
     Active Substance: ASCORBIC ACID
  25. DAUNORUBICIN [Suspect]
     Active Substance: DAUNORUBICIN
     Dates: end: 20181106
  26. ONCASPAR [Suspect]
     Active Substance: PEGASPARGASE
     Dates: end: 20181104
  27. ACETAMINOPHEN. [Concomitant]
     Active Substance: ACETAMINOPHEN
  28. GEBTANUCUB [Concomitant]
  29. CEFEPIME [Concomitant]
     Active Substance: CEFEPIME HYDROCHLORIDE
  30. MIDAZOLAN ADDITIVE [Concomitant]
  31. BACUTRACUB TOPICAL [Concomitant]
  32. CALCIUM CHLORIDE. [Concomitant]
     Active Substance: CALCIUM CHLORIDE
  33. LORAZEPAM. [Concomitant]
     Active Substance: LORAZEPAM
  34. DIPHENHYDRAMINE. [Concomitant]
     Active Substance: DIPHENHYDRAMINE
  35. GLUCAGON. [Concomitant]
     Active Substance: GLUCAGON
  36. HUMALOG [Concomitant]
     Active Substance: INSULIN LISPRO

REACTIONS (11)
  - Cardiac arrest [None]
  - Respiratory tract haemorrhage [None]
  - Vomiting [None]
  - Hypotension [None]
  - Rectal haemorrhage [None]
  - Abdominal pain lower [None]
  - Metabolic acidosis [None]
  - Abdominal pain upper [None]
  - Therapy non-responder [None]
  - Blood urea increased [None]
  - Respiratory acidosis [None]

NARRATIVE: CASE EVENT DATE: 20181030
